FAERS Safety Report 25269850 (Version 3)
Quarter: 2025Q2

REPORT INFORMATION
  Report Type: Report from Study
  Country: US (occurrence: US)
  Receive Date: 20250505
  Receipt Date: 20250611
  Transmission Date: 20250716
  Serious: Yes (Other)
  Sender: UCB
  Company Number: US-UCBSA-2025025862

PATIENT
  Age: 57 Year
  Sex: Female

DRUGS (2)
  1. BRIVARACETAM [Suspect]
     Active Substance: BRIVARACETAM
     Indication: Petit mal epilepsy
     Dosage: 100 MILLIGRAM, 2X/DAY (BID)
  2. BRIVARACETAM [Suspect]
     Active Substance: BRIVARACETAM
     Indication: Seizure

REACTIONS (4)
  - Chronic kidney disease [Not Recovered/Not Resolved]
  - Weight decreased [Not Recovered/Not Resolved]
  - Constipation [Not Recovered/Not Resolved]
  - Product use in unapproved indication [Unknown]

NARRATIVE: CASE EVENT DATE: 20250401
